FAERS Safety Report 11603132 (Version 1)
Quarter: 2015Q4

REPORT INFORMATION
  Report Type: Spontaneous
  Country: US (occurrence: None)
  Receive Date: 20151005
  Receipt Date: 20151005
  Transmission Date: 20160304
  Serious: Yes (Disabling)
  Sender: FDA-Public Use
  Company Number: None

PATIENT
  Age: 44 Year
  Sex: Male
  Weight: 87.54 kg

DRUGS (5)
  1. CELEBREX [Concomitant]
     Active Substance: CELECOXIB
  2. METFOMIN [Concomitant]
     Active Substance: METFORMIN HYDROCHLORIDE
  3. CLOBETASOL PROPIONATE. [Concomitant]
     Active Substance: CLOBETASOL PROPIONATE
  4. BIOTIN [Concomitant]
     Active Substance: BIOTIN
  5. RAPTIVA [Suspect]
     Active Substance: EFALIZUMAB
     Indication: PSORIASIS
     Dosage: 1 SHOT, ABDOMINAL INJECTION

REACTIONS (5)
  - Staphylococcal infection [None]
  - Hepatic steatosis [None]
  - Hepatomegaly [None]
  - Diabetes mellitus [None]
  - Psoriatic arthropathy [None]
